FAERS Safety Report 15796523 (Version 1)
Quarter: 2019Q1

REPORT INFORMATION
  Report Type: Spontaneous
  Country: NO (occurrence: NO)
  Receive Date: 20190108
  Receipt Date: 20190108
  Transmission Date: 20190417
  Serious: Yes (Other)
  Sender: FDA-Public Use
  Company Number: NO-TOLMAR, INC.-2019NO000056

PATIENT

DRUGS (1)
  1. ELIGARD [Suspect]
     Active Substance: LEUPROLIDE ACETATE
     Indication: PROSTATE CANCER
     Dosage: UNK
     Route: 058

REACTIONS (5)
  - Chills [Unknown]
  - Hypersensitivity [Unknown]
  - Pyrexia [Unknown]
  - Tremor [Unknown]
  - Angioedema [Unknown]
